FAERS Safety Report 12041958 (Version 1)
Quarter: 2016Q1

REPORT INFORMATION
  Report Type: Spontaneous
  Country: FR (occurrence: FR)
  Receive Date: 20160208
  Receipt Date: 20160208
  Transmission Date: 20160526
  Serious: Yes (Hospitalization)
  Sender: FDA-Public Use
  Company Number: FR-JNJFOC-20160202832

PATIENT
  Age: 72 Year
  Sex: Male

DRUGS (9)
  1. XARELTO [Suspect]
     Active Substance: RIVAROXABAN
     Indication: CEREBROVASCULAR ACCIDENT PROPHYLAXIS
     Route: 048
     Dates: start: 201402, end: 20150516
  2. BURINEX [Concomitant]
     Active Substance: BUMETANIDE
     Dosage: 3MG, QD
     Route: 065
  3. XARELTO [Suspect]
     Active Substance: RIVAROXABAN
     Indication: ATRIAL FIBRILLATION
     Route: 048
     Dates: start: 201402, end: 20150516
  4. BUDESONIDE. [Concomitant]
     Active Substance: BUDESONIDE
     Dosage: 400 MICROGRAM, QD
     Route: 065
  5. CORDARONE [Concomitant]
     Active Substance: AMIODARONE HYDROCHLORIDE
     Dosage: 200MG, QD
     Route: 065
  6. RILMENIDINE [Concomitant]
     Active Substance: RILMENIDINE
     Dosage: 1MG, QD
     Route: 065
  7. TADENAN [Concomitant]
     Active Substance: PYGEUM
     Dosage: 100MG, QD
     Route: 065
  8. TAHOR [Concomitant]
     Active Substance: ATORVASTATIN CALCIUM
     Dosage: 10MG, QD
     Route: 065
  9. LASILIX [Concomitant]
     Active Substance: FUROSEMIDE
     Dosage: 60MG. QD
     Route: 065

REACTIONS (2)
  - Cerebral infarction [Recovered/Resolved]
  - Drug ineffective [Recovered/Resolved]

NARRATIVE: CASE EVENT DATE: 20150516
